FAERS Safety Report 9451450 (Version 1)
Quarter: 2013Q3

REPORT INFORMATION
  Report Type: Spontaneous
  Country: US (occurrence: US)
  Receive Date: 20130809
  Receipt Date: 20130809
  Transmission Date: 20140515
  Serious: Yes (Other)
  Sender: FDA-Public Use
  Company Number: US-009507513-1308USA000265

PATIENT
  Age: 73 Year
  Sex: Female
  Weight: 61.5 kg

DRUGS (16)
  1. ZOCOR [Suspect]
     Route: 048
  2. SUTENT [Concomitant]
     Indication: PANCREATIC NEUROENDOCRINE TUMOUR
     Dosage: 1 DF, QD
     Route: 048
     Dates: start: 20121221
  3. MEGESTROL ACETATE [Concomitant]
     Dosage: 40 MG/ML; 800 MG, QD
     Route: 048
  4. ALLOPURINOL [Concomitant]
     Dosage: 1 DF, PRN
     Route: 048
  5. CARDIZEM CD [Concomitant]
     Dosage: 1 DF, QD SUSTAINED RELEASE 24H
     Route: 048
  6. CHLORZOXAZONE [Concomitant]
     Dosage: 1 DF, TID
     Route: 048
  7. COLACE [Concomitant]
     Dosage: 1 DF,BID PRN
     Route: 048
  8. ENALAPRIL MALEATE [Concomitant]
     Dosage: 1 DF, QD
     Route: 048
  9. FENTANYL [Concomitant]
     Dosage: PATCH, 1 PATCH TOPICAL Q72H AS DIRECTED
     Route: 062
  10. LANTUS [Concomitant]
     Dosage: 20 UNITS AS DIRECTED
     Route: 058
  11. METOPROLOL TARTRATE [Concomitant]
     Dosage: 1 DF, BID
     Route: 048
  12. NOVOLOG [Concomitant]
     Dosage: 25 U AS DIRECTED
     Route: 058
  13. OMEPRAZOLE [Concomitant]
     Dosage: 1 DF, QD
     Route: 048
  14. OXYCODONE HYDROCHLORIDE [Concomitant]
     Indication: PAIN
     Dosage: Q3-4H
     Route: 048
  15. PREDNISONE [Concomitant]
     Dosage: 1 DF, QOD
     Route: 048
  16. SUCRALFATE [Concomitant]
     Dosage: 1 DF, QID
     Route: 048

REACTIONS (45)
  - Neuroendocrine carcinoma metastatic [Not Recovered/Not Resolved]
  - Renal failure chronic [Unknown]
  - Rash [Unknown]
  - Deficiency anaemia [Unknown]
  - Iron deficiency [Unknown]
  - Constipation [Unknown]
  - Fatigue [Unknown]
  - Dermatitis [Unknown]
  - Visual impairment [Unknown]
  - Cataract [Recovered/Resolved]
  - Hypoglycaemia [Unknown]
  - Weight decreased [Unknown]
  - Dizziness [Unknown]
  - Oedema [Unknown]
  - Asthenia [Unknown]
  - Dyspnoea [Unknown]
  - Metastases to bone [Unknown]
  - Alopecia [Unknown]
  - Lip pain [Unknown]
  - Oral herpes [Unknown]
  - Feeling cold [Unknown]
  - Pancreatic neuroendocrine tumour metastatic [Unknown]
  - Diabetes mellitus [Unknown]
  - Arthritis [Unknown]
  - Hypercholesterolaemia [Unknown]
  - Arrhythmia [Unknown]
  - Cardiac failure congestive [Unknown]
  - Gout [Unknown]
  - Hypertriglyceridaemia [Unknown]
  - Gastrooesophageal reflux disease [Unknown]
  - Subdural haematoma evacuation [Unknown]
  - Cardiomegaly [Recovered/Resolved]
  - Lymphadenopathy [Unknown]
  - Haemorrhage [Unknown]
  - Platelet count decreased [Unknown]
  - Haematochezia [Unknown]
  - Cardiac failure congestive [Unknown]
  - Decreased appetite [Unknown]
  - Cataract operation [Recovered/Resolved]
  - Pain in extremity [Not Recovered/Not Resolved]
  - Pelvic pain [Not Recovered/Not Resolved]
  - Chest pain [Not Recovered/Not Resolved]
  - Depression [Unknown]
  - Fat tissue increased [Unknown]
  - Pain [Unknown]
